FAERS Safety Report 5598770-2 (Version None)
Quarter: 2008Q1

REPORT INFORMATION
  Report Type: 
  Country: None (occurrence: None)
  Receive Date: 20080122
  Receipt Date: 20080111
  Transmission Date: 20080703
  Serious: Yes (Other)
  Sender: FDA-Public Use
  Company Number: US-RANBAXY-2008US-12597

PATIENT

DRUGS (4)
  1. VERAPAMIL [Suspect]
     Indication: HYPERTENSION
     Dosage: 480 MG, BID
     Route: 048
     Dates: start: 19980901, end: 20071201
  2. SPIRONOLACTONE [Suspect]
     Indication: HYPERTENSION
     Dosage: 37.5 MG, UNK
     Route: 048
     Dates: start: 20000601
  3. ACETYLSALICYLATE LYSINE [Concomitant]
     Indication: DRUG USE FOR UNKNOWN INDICATION
     Dosage: 160 MG, QD
     Dates: start: 20000201
  4. RIMENIDINE [Concomitant]
     Indication: HYPERTENSION
     Dosage: 1 MG, QD
     Route: 048
     Dates: start: 20060601, end: 20071001

REACTIONS (3)
  - POLYNEUROPATHY [None]
  - VITAMIN B1 DEFICIENCY [None]
  - VITAMIN B6 DEFICIENCY [None]
